FAERS Safety Report 14033184 (Version 1)
Quarter: 2017Q4

REPORT INFORMATION
  Report Type: Other
  Country: US (occurrence: US)
  Receive Date: 20171002
  Receipt Date: 20171002
  Transmission Date: 20180321
  Serious: Yes (Other)
  Sender: FDA-Public Use
  Company Number: US-IMPRIMIS NJOF-2028489

PATIENT
  Age: 85 Year
  Sex: Female

DRUGS (1)
  1. TRIAMCINOLONE-MOXIFLOXACIN (15/1) MG/ML [Suspect]
     Active Substance: MOXIFLOXACIN\TRIAMCINOLONE
     Dates: start: 20170817, end: 20170817

REACTIONS (2)
  - Surgery [Unknown]
  - Post procedural infection [None]

NARRATIVE: CASE EVENT DATE: 20170817
